FAERS Safety Report 4852727-5 (Version None)
Quarter: 2005Q4

REPORT INFORMATION
  Report Type: 
  Country: None (occurrence: None)
  Receive Date: 20051213
  Receipt Date: 20051124
  Transmission Date: 20060501
  Serious: Yes (Other)
  Sender: FDA-Public Use
  Company Number: KR-MERCK-0511KOR00020

PATIENT

DRUGS (1)
  1. PROPECIA [Suspect]
     Route: 048
     Dates: start: 20040101, end: 20050101

REACTIONS (1)
  - OSTEONECROSIS [None]
